FAERS Safety Report 23965801 (Version 3)
Quarter: 2024Q3

REPORT INFORMATION
  Report Type: Spontaneous
  Country: US (occurrence: US)
  Receive Date: 20240612
  Receipt Date: 20240731
  Transmission Date: 20241016
  Serious: No
  Sender: AMGEN
  Company Number: US-AMGEN-USASP2024112816

PATIENT
  Age: 51 Year

DRUGS (2)
  1. NEULASTA [Suspect]
     Active Substance: PEGFILGRASTIM
     Indication: Breast cancer
     Dosage: 6 MILLIGRAM, Q2WK (EVERY TWO WEEKS MAYBE)
     Route: 058
  2. NEULASTA [Suspect]
     Active Substance: PEGFILGRASTIM
     Dosage: 6 MILLIGRAM, Q2WK (EVERY TWO WEEKS MAYBE)
     Route: 058

REACTIONS (2)
  - Wrong technique in product usage process [Unknown]
  - Device occlusion [Unknown]

NARRATIVE: CASE EVENT DATE: 20240605
